FAERS Safety Report 4945165-8 (Version None)
Quarter: 2006Q1

REPORT INFORMATION
  Report Type: 
  Country: None (occurrence: None)
  Receive Date: 20060316
  Receipt Date: 20060307
  Transmission Date: 20060701
  Serious: Yes (Hospitalization, Other)
  Sender: FDA-Public Use
  Company Number: US-JNJFOC-20060105300

PATIENT
  Age: 5 Day
  Sex: Male
  Weight: 3 kg

DRUGS (2)
  1. ACETAMINOPHEN [Suspect]
  2. ACETAMINOPHEN [Suspect]
     Dosage: 1 INCH LEVEL IN A DEEP CUP EVERY 4 HOURS FOR A DURATION OF 3 DAYS.

REACTIONS (2)
  - HEPATORENAL FAILURE [None]
  - OVERDOSE [None]
